FAERS Safety Report 6186443-7 (Version None)
Quarter: 2009Q2

REPORT INFORMATION
  Report Type: 
  Country: None (occurrence: None)
  Receive Date: 20090511
  Receipt Date: 20090427
  Transmission Date: 20091009
  Serious: Yes (Other)
  Sender: FDA-Public Use
  Company Number: FR-AMGEN-US339013

PATIENT
  Sex: Female
  Weight: 71 kg

DRUGS (7)
  1. ENBREL [Suspect]
     Indication: RHEUMATOID ARTHRITIS
     Route: 058
     Dates: start: 20060428, end: 20061126
  2. NOVATREX [Suspect]
     Indication: RHEUMATOID ARTHRITIS
     Dosage: 12.5 MG TOTAL WEEKLY
     Route: 048
     Dates: start: 20020627, end: 20090311
  3. SPECIAFOLDINE [Concomitant]
     Indication: RHEUMATOID ARTHRITIS
     Dosage: 2 TABLETS TOTAL WEEKLY
     Route: 048
     Dates: start: 20020627, end: 20090311
  4. INIPOMP [Concomitant]
     Indication: RHEUMATOID ARTHRITIS
     Route: 048
     Dates: start: 20040909
  5. BREXIN [Concomitant]
     Indication: RHEUMATOID ARTHRITIS
     Dosage: 20 TO 60 MG TOTAL WEEKLY
     Route: 048
     Dates: start: 20040909
  6. IDEOS [Concomitant]
     Dosage: 2 TABLETS DAILY
     Route: 048
     Dates: start: 19990107
  7. CORTANCYL [Concomitant]
     Indication: RHEUMATOID ARTHRITIS
     Route: 048
     Dates: start: 19990107

REACTIONS (4)
  - CHEILITIS [None]
  - CONDITION AGGRAVATED [None]
  - LIP NEOPLASM MALIGNANT STAGE UNSPECIFIED [None]
  - RHEUMATOID ARTHRITIS [None]
